FAERS Safety Report 7804914-1 (Version None)
Quarter: 2011Q4

REPORT INFORMATION
  Report Type: 
  Country: None (occurrence: None)
  Receive Date: 20111010
  Receipt Date: 20111004
  Transmission Date: 20120403
  Serious: Yes (Other)
  Sender: FDA-Public Use
  Company Number: US-ABBOTT-11P-163-0860917-00

PATIENT
  Sex: Female
  Weight: 74.91 kg

DRUGS (3)
  1. HUMIRA [Suspect]
     Indication: CROHN'S DISEASE
     Route: 058
     Dates: start: 20070101, end: 20090501
  2. HUMIRA [Suspect]
     Route: 058
     Dates: start: 20091001
  3. PREDNISONE [Suspect]
     Indication: CROHN'S DISEASE

REACTIONS (5)
  - INTESTINAL OBSTRUCTION [None]
  - SCAR [None]
  - WOUND INFECTION [None]
  - IMPAIRED HEALING [None]
  - INTESTINAL ANASTOMOSIS COMPLICATION [None]
